FAERS Safety Report 8958170 (Version 1)
Quarter: 2012Q4

REPORT INFORMATION
  Report Type: 
  Country: PR (occurrence: PR)
  Receive Date: 20121211
  Receipt Date: 20121211
  Transmission Date: 20130627
  Serious: Yes (Other)
  Sender: FDA-Public Use
  Company Number: PR-BAYER-2012-127820

PATIENT
  Age: 80 Year
  Sex: Female

DRUGS (1)
  1. NEXAVAR [Suspect]
     Indication: HEPATIC NEOPLASM MALIGNANT
     Dosage: 400 mg, QD
     Route: 048
     Dates: start: 201210

REACTIONS (3)
  - Senile dementia [None]
  - Eating disorder [None]
  - Depression [None]
